FAERS Safety Report 10066257 (Version 1)
Quarter: 2014Q2

REPORT INFORMATION
  Report Type: Spontaneous
  Country: US (occurrence: US)
  Receive Date: 20140408
  Receipt Date: 20140408
  Transmission Date: 20141212
  Serious: Yes (Death)
  Sender: FDA-Public Use
  Company Number: US-ASTELLAS-2014US003554

PATIENT
  Sex: Female

DRUGS (1)
  1. MYCAMINE [Suspect]
     Indication: CANDIDA INFECTION
     Dosage: UNK
     Route: 042
     Dates: start: 20140219, end: 20140402

REACTIONS (1)
  - Death [Fatal]
